FAERS Safety Report 6481234-1 (Version None)
Quarter: 2009Q4

REPORT INFORMATION
  Report Type: 
  Country: None (occurrence: None)
  Receive Date: 20091123
  Receipt Date: 20091001
  Transmission Date: 20100525
  Serious: No
  Sender: FDA-Public Use
  Company Number: 8052866

PATIENT
  Age: 55 Year
  Sex: Female
  Weight: 68.2 kg

DRUGS (6)
  1. CIMZIA [Suspect]
     Indication: CROHN'S DISEASE
     Dosage: 400 MG SC
     Route: 058
     Dates: start: 20080101
  2. LAMOTIL [Concomitant]
  3. FOSAMAX [Concomitant]
  4. RANITIDINE [Concomitant]
  5. ZOLOFT [Concomitant]
  6. LORTAB [Concomitant]

REACTIONS (2)
  - FREQUENT BOWEL MOVEMENTS [None]
  - RECTAL HAEMORRHAGE [None]
